FAERS Safety Report 20049859 (Version 1)
Quarter: 2021Q4

REPORT INFORMATION
  Report Type: Report from Study
  Country: IT (occurrence: IT)
  Receive Date: 20211109
  Receipt Date: 20211109
  Transmission Date: 20220303
  Serious: Yes (Hospitalization)
  Sender: FDA-Public Use
  Company Number: None

PATIENT
  Age: 78 Year
  Sex: Female

DRUGS (1)
  1. EDOXABAN TOSYLATE [Suspect]
     Active Substance: EDOXABAN TOSYLATE
     Indication: Anticoagulant therapy
     Dosage: 60 MG, QD
     Route: 048
     Dates: end: 202110

REACTIONS (3)
  - Diarrhoea [Recovering/Resolving]
  - Rectal haemorrhage [Recovering/Resolving]
  - Rectal haemorrhage [Recovering/Resolving]

NARRATIVE: CASE EVENT DATE: 20211021
